FAERS Safety Report 23815215 (Version 1)
Quarter: 2024Q2

REPORT INFORMATION
  Report Type: Spontaneous
  Country: US (occurrence: US)
  Receive Date: 20240503
  Receipt Date: 20240503
  Transmission Date: 20240716
  Serious: No
  Sender: FDA-Public Use
  Company Number: US-ABBVIE-5742674

PATIENT

DRUGS (1)
  1. VRAYLAR [Suspect]
     Active Substance: CARIPRAZINE
     Indication: Anxiety
     Dosage: 1.5 MG
     Route: 048

REACTIONS (8)
  - Feeling abnormal [Unknown]
  - Dysstasia [Unknown]
  - Panic attack [Unknown]
  - Hypoaesthesia [Unknown]
  - Restless legs syndrome [Unknown]
  - Muscle fatigue [Unknown]
  - Discomfort [Unknown]
  - Insomnia [Unknown]
